FAERS Safety Report 8017349-6 (Version None)
Quarter: 2012Q1

REPORT INFORMATION
  Report Type: 
  Country: None (occurrence: None)
  Receive Date: 20120102
  Receipt Date: 20111226
  Transmission Date: 20120608
  Serious: Yes (Death, Other)
  Sender: FDA-Public Use
  Company Number: US-ROCHE-1026003

PATIENT

DRUGS (4)
  1. MABTHERA [Suspect]
     Indication: PROPHYLAXIS AGAINST TRANSPLANT REJECTION
     Dosage: 3 WEEKS BEFORE TRANSPLANT
  2. PREDNISONE TAB [Suspect]
     Indication: PROPHYLAXIS AGAINST TRANSPLANT REJECTION
  3. MYCOPHENOLATE MOFETIL (CELLCEPT) [Suspect]
     Indication: PROPHYLAXIS AGAINST TRANSPLANT REJECTION
  4. IMMUNE GLOBULIN (HUMAN) [Suspect]
     Indication: PROPHYLAXIS AGAINST TRANSPLANT REJECTION

REACTIONS (14)
  - CHOLECYSTITIS INFECTIVE [None]
  - DIVERTICULITIS [None]
  - ABSCESS [None]
  - SEPSIS [None]
  - COCCIDIOIDOMYCOSIS [None]
  - BRONCHOPULMONARY ASPERGILLOSIS [None]
  - URINARY TRACT INFECTION [None]
  - INFECTIOUS PERITONITIS [None]
  - PNEUMONIA [None]
  - APPENDICITIS [None]
  - INFLUENZA [None]
  - CELLULITIS [None]
  - PYELONEPHRITIS [None]
  - HERPES ZOSTER [None]
